FAERS Safety Report 4925561-5 (Version None)
Quarter: 2006Q1

REPORT INFORMATION
  Report Type: 
  Country: None (occurrence: None)
  Receive Date: 20060228
  Receipt Date: 20041108
  Transmission Date: 20060701
  Serious: Yes (Life-Threatening)
  Sender: FDA-Public Use
  Company Number: US-GLAXOSMITHKLINE-A0533115A

PATIENT
  Age: 78 Year
  Sex: Female
  Weight: 56.8 kg

DRUGS (9)
  1. LAMICTAL [Suspect]
     Indication: NERVE COMPRESSION
     Dosage: 25MG TWICE PER DAY
     Route: 048
     Dates: start: 20041026, end: 20041028
  2. VERAPAMIL [Concomitant]
  3. DIOVAN HCT [Concomitant]
  4. ZOLOFT [Concomitant]
  5. LIPITOR [Concomitant]
  6. PRILOSEC [Concomitant]
  7. SINGULAIR [Concomitant]
  8. ASPIRIN [Concomitant]
  9. AVINZA [Concomitant]
     Indication: PAIN
     Dosage: 30MG PER DAY
     Route: 048

REACTIONS (5)
  - ABDOMINAL PAIN [None]
  - DIARRHOEA [None]
  - DRUG HYPERSENSITIVITY [None]
  - PRURITUS [None]
  - RASH PRURITIC [None]
